FAERS Safety Report 23914813 (Version 1)
Quarter: 2024Q2

REPORT INFORMATION
  Report Type: Spontaneous
  Country: GB (occurrence: GB)
  Receive Date: 20240529
  Receipt Date: 20240529
  Transmission Date: 20240716
  Serious: Yes (Other)
  Sender: FDA-Public Use
  Company Number: None

PATIENT
  Age: 79 Year
  Sex: Male
  Weight: 102 kg

DRUGS (8)
  1. LATANOPROST [Suspect]
     Active Substance: LATANOPROST
     Indication: Product used for unknown indication
     Dosage: UNK, PM (ONE DROP TO BOTH EYES ONCE DAILY IN THE EVENING...50MCG/ML)
     Route: 031
     Dates: start: 20240202, end: 20240319
  2. AMITRIPTYLINE HYDROCHLORIDE [Concomitant]
     Active Substance: AMITRIPTYLINE HYDROCHLORIDE
     Dosage: 1 DOSAGE FORM, HS (AT NIGHT)
     Route: 065
     Dates: start: 20240202
  3. ATORVASTATIN [Concomitant]
     Active Substance: ATORVASTATIN
     Dosage: 1 DOSAGE FORM, QD
     Route: 065
     Dates: start: 20240202
  4. BIMATOPROST [Concomitant]
     Active Substance: BIMATOPROST
     Dosage: QD (ONE DROP ONCE DAILY TO BOTH EYES)
     Route: 031
     Dates: start: 20240319
  5. DYMISTA [Concomitant]
     Active Substance: AZELASTINE HYDROCHLORIDE\FLUTICASONE PROPIONATE
     Dosage: 2 DOSAGE FORM, BID, (ONE PUFF TWICE DAILY IN EACH NOSTRIL)
     Route: 045
     Dates: start: 20240202
  6. LANSOPRAZOLE [Concomitant]
     Active Substance: LANSOPRAZOLE
     Dosage: 1 DOSAGE FORM, QD
     Route: 065
     Dates: start: 20240202
  7. TAMSULOSIN HYDROCHLORIDE [Concomitant]
     Active Substance: TAMSULOSIN HYDROCHLORIDE
     Dosage: 1 DOSAGE FORM, QD
     Route: 065
     Dates: start: 20240202
  8. TRAMADOL [Concomitant]
     Active Substance: TRAMADOL\TRAMADOL HYDROCHLORIDE
     Dosage: UNK, QID, (ONE OR TWO TO BE TAKEN FOUR TIMES A DAY)
     Route: 065
     Dates: start: 20240202

REACTIONS (2)
  - Ocular hyperaemia [Recovered/Resolved]
  - Foreign body sensation in eyes [Unknown]

NARRATIVE: CASE EVENT DATE: 20240514
